FAERS Safety Report 12671372 (Version 1)
Quarter: 2016Q3

REPORT INFORMATION
  Report Type: Spontaneous
  Country: US (occurrence: US)
  Receive Date: 20160822
  Receipt Date: 20160822
  Transmission Date: 20161109
  Serious: No
  Sender: FDA-Public Use
  Company Number: US-TEVA-679906USA

PATIENT
  Age: 72 Year
  Sex: Female
  Weight: 90.7 kg

DRUGS (2)
  1. FEXOFENADINE [Suspect]
     Active Substance: FEXOFENADINE\FEXOFENADINE HYDROCHLORIDE
     Indication: SINUS DISORDER
     Dosage: 180 MILLIGRAM DAILY;
     Route: 048
     Dates: start: 20160718, end: 20160718
  2. AMOXICILLIN. [Concomitant]
     Active Substance: AMOXICILLIN
     Dates: start: 201607

REACTIONS (4)
  - Dry throat [Recovered/Resolved]
  - Drug administered to patient of inappropriate age [Unknown]
  - Off label use [Unknown]
  - Dysphonia [Not Recovered/Not Resolved]

NARRATIVE: CASE EVENT DATE: 20160718
